FAERS Safety Report 4860864-4 (Version None)
Quarter: 2005Q4

REPORT INFORMATION
  Report Type: 
  Country: None (occurrence: None)
  Receive Date: 20051220
  Receipt Date: 20051209
  Transmission Date: 20060501
  Serious: Yes (Other)
  Sender: FDA-Public Use
  Company Number: CA-BRISTOL-MYERS SQUIBB COMPANY-13219068

PATIENT
  Age: 83 Year
  Sex: Female

DRUGS (13)
  1. TEQUIN [Suspect]
     Route: 048
  2. ALTACE [Concomitant]
  3. COLACE [Concomitant]
  4. DECADRON [Concomitant]
  5. ASPIRIN [Concomitant]
  6. EPINEPHRINE [Concomitant]
  7. HEPARIN [Concomitant]
  8. LASIX [Concomitant]
  9. LIPITOR [Concomitant]
  10. METOPROLOL [Concomitant]
  11. TRAZODONE HCL [Concomitant]
  12. VENTOLIN [Concomitant]
  13. ZANTAC [Concomitant]

REACTIONS (1)
  - HYPERGLYCAEMIA [None]
